FAERS Safety Report 15414372 (Version 3)
Quarter: 2018Q4

REPORT INFORMATION
  Report Type: Spontaneous
  Country: US (occurrence: US)
  Receive Date: 20180921
  Receipt Date: 20181221
  Transmission Date: 20190204
  Serious: Yes (Hospitalization, Other)
  Sender: FDA-Public Use
  Company Number: PHEH2018US038273

PATIENT
  Sex: Female

DRUGS (3)
  1. INSULIN [Interacting]
     Active Substance: INSULIN NOS
     Indication: PRODUCT USED FOR UNKNOWN INDICATION
     Dosage: UNK
     Route: 065
  2. LENVATINIB [Suspect]
     Active Substance: LENVATINIB
     Indication: RENAL CANCER
     Dosage: 18 MG, QD
     Route: 048
  3. AFINITOR [Suspect]
     Active Substance: EVEROLIMUS
     Indication: RENAL CANCER
     Dosage: 5 MG, QD
     Route: 048

REACTIONS (18)
  - Oesophageal pain [Unknown]
  - Dysphagia [Unknown]
  - Muscle fatigue [Unknown]
  - Nausea [Unknown]
  - Eating disorder [Unknown]
  - Weight decreased [Unknown]
  - Blood glucose decreased [Unknown]
  - Dyspepsia [Unknown]
  - Vomiting [Unknown]
  - Drug interaction [Unknown]
  - Abdominal discomfort [Unknown]
  - Lethargy [Unknown]
  - Skin ulcer [Unknown]
  - Central nervous system lesion [Unknown]
  - Bone neoplasm [Recovered/Resolved]
  - Fatigue [Unknown]
  - Arthralgia [Recovered/Resolved]
  - Diarrhoea [Unknown]
